FAERS Safety Report 5626293-0 (Version None)
Quarter: 2008Q1

REPORT INFORMATION
  Report Type: 
  Country: None (occurrence: None)
  Receive Date: 20080213
  Receipt Date: 20080213
  Transmission Date: 20080703
  Serious: Yes (Hospitalization, Other)
  Sender: FDA-Public Use
  Company Number: None

PATIENT
  Sex: Female
  Weight: 56.6996 kg

DRUGS (1)
  1. VYTORIN [Suspect]
     Indication: HYPOCHOLESTEROLAEMIA
     Dosage: 10/20 DAILY ORAL
     Route: 048
     Dates: start: 20070426, end: 20070701

REACTIONS (1)
  - MYALGIA [None]
